FAERS Safety Report 5596192-1 (Version None)
Quarter: 2008Q1

REPORT INFORMATION
  Report Type: 
  Country: None (occurrence: None)
  Receive Date: 20080118
  Receipt Date: 20080103
  Transmission Date: 20080703
  Serious: Yes (Other)
  Sender: FDA-Public Use
  Company Number: US-BOEHRINGER INGELHEIM PHARMACEUTICALS, INC.-2008-BP-00194BP

PATIENT
  Sex: Male

DRUGS (9)
  1. MOBIC [Suspect]
     Indication: OSTEOARTHRITIS
     Route: 048
     Dates: end: 20071201
  2. FLEXERIL [Suspect]
     Indication: MUSCLE SPASMS
     Route: 048
  3. REQUIP [Suspect]
     Indication: RESTLESS LEGS SYNDROME
     Route: 048
     Dates: start: 20060501, end: 20071126
  4. NORCO [Suspect]
     Indication: DRUG USE FOR UNKNOWN INDICATION
     Route: 065
  5. TYLENOL [Suspect]
  6. ASPIRIN [Suspect]
  7. ANITDEPRESSANT [Concomitant]
  8. ACETAMINOPHEN [Concomitant]
  9. ASPIRIN [Concomitant]

REACTIONS (4)
  - ALANINE AMINOTRANSFERASE INCREASED [None]
  - ASPARTATE AMINOTRANSFERASE INCREASED [None]
  - BLOOD ALKALINE PHOSPHATASE [None]
  - BLOOD ALKALINE PHOSPHATASE INCREASED [None]
